FAERS Safety Report 21391017 (Version 1)
Quarter: 2022Q3

REPORT INFORMATION
  Report Type: Spontaneous
  Country: US (occurrence: None)
  Receive Date: 20220928
  Receipt Date: 20220928
  Transmission Date: 20221027
  Serious: Yes (Hospitalization)
  Sender: FDA-Public Use
  Company Number: None

PATIENT
  Age: 77 Year
  Sex: Male

DRUGS (1)
  1. WARFARIN SODIUM [Suspect]
     Active Substance: WARFARIN SODIUM
     Indication: Atrial fibrillation
     Dosage: 1 MG EVERY DAY PO
     Route: 048
     Dates: start: 20200706

REACTIONS (2)
  - Haematoma [None]
  - Limb injury [None]

NARRATIVE: CASE EVENT DATE: 20220915
